FAERS Safety Report 5117917-5 (Version None)
Quarter: 2006Q3

REPORT INFORMATION
  Report Type: 
  Country: None (occurrence: None)
  Receive Date: 20060925
  Receipt Date: 20060726
  Transmission Date: 20061208
  Serious: Yes (Life-Threatening, Hospitalization, Disabling)
  Sender: FDA-Public Use
  Company Number: HR200609004230

PATIENT
  Age: 41 Year
  Sex: Female

DRUGS (5)
  1. EVISTA [Suspect]
     Indication: OSTEOPOROSIS
     Dosage: 60 MG, DAILY (1/D), ORAL
     Route: 048
     Dates: start: 20050207, end: 20051205
  2. FLUOXETINE [Concomitant]
  3. CERSON (NITRAZEPAM) [Concomitant]
  4. COLECALCIFEROL [Concomitant]
  5. NSAID'S [Concomitant]

REACTIONS (7)
  - ABDOMINAL DISTENSION [None]
  - BRADYPHRENIA [None]
  - DEPRESSION [None]
  - HEADACHE [None]
  - NAUSEA [None]
  - PHOBIA [None]
  - SPINAL FRACTURE [None]
